FAERS Safety Report 20463201 (Version 1)
Quarter: 2022Q1

REPORT INFORMATION
  Report Type: Report from Study
  Country: IT (occurrence: IT)
  Receive Date: 20220211
  Receipt Date: 20220211
  Transmission Date: 20220424
  Serious: Yes (Hospitalization)
  Sender: FDA-Public Use
  Company Number: None

PATIENT
  Age: 81 Year
  Sex: Female

DRUGS (9)
  1. PAROXETINE [Suspect]
     Active Substance: PAROXETINE
     Dosage: 20 MG
     Route: 048
     Dates: start: 20210101, end: 20211222
  2. BISOPROLOL [Suspect]
     Active Substance: BISOPROLOL
     Dosage: 7.5 MG
     Route: 048
     Dates: start: 20210101, end: 20211222
  3. ISOPTIN [Suspect]
     Active Substance: VERAPAMIL HYDROCHLORIDE
     Dosage: ISOPTIN 40 MG COMPRESSE RIVESTITE, 60 MG
     Route: 048
     Dates: start: 20210101, end: 20211222
  4. TRAZODONE HYDROCHLORIDE [Suspect]
     Active Substance: TRAZODONE HYDROCHLORIDE
     Dates: start: 20210101, end: 20211222
  5. ATORVASTATIN [Concomitant]
     Active Substance: ATORVASTATIN
     Dosage: 20 MG
  6. LASIX [Concomitant]
     Active Substance: FUROSEMIDE
  7. CANRENOATE POTASSIUM [Concomitant]
     Active Substance: CANRENOATE POTASSIUM
     Dosage: KANRENOL 100 COMPRESSE
  8. OMEPRAZOLE [Concomitant]
     Active Substance: OMEPRAZOLE
     Dosage: 20 MG
  9. ELIQUIS [Concomitant]
     Active Substance: APIXABAN
     Dosage: ELIQUIS 2.5 MG FILM-COATED TABLETS

REACTIONS (2)
  - Electrocardiogram QT prolonged [Not Recovered/Not Resolved]
  - Bradycardia [Not Recovered/Not Resolved]

NARRATIVE: CASE EVENT DATE: 20211222
